FAERS Safety Report 16453265 (Version 1)
Quarter: 2019Q2

REPORT INFORMATION
  Report Type: Spontaneous
  Country: CA (occurrence: CA)
  Receive Date: 20190619
  Receipt Date: 20190619
  Transmission Date: 20190711
  Serious: Yes (Other)
  Sender: FDA-Public Use
  Company Number: CA-PURDUE PHARMA-CAN-2019-0010151

PATIENT
  Age: 74 Year
  Sex: Female

DRUGS (2)
  1. BUTRANS [Suspect]
     Active Substance: BUPRENORPHINE
     Indication: PRODUCT USED FOR UNKNOWN INDICATION
     Dosage: 10 MCG, Q1H
     Route: 062
  2. TRAMADOL AND ACETAMINOPHEN [Concomitant]
     Active Substance: ACETAMINOPHEN\TRAMADOL HYDROCHLORIDE
     Indication: PAIN
     Dosage: 1-2 TABLETS DAILY
     Route: 048

REACTIONS (5)
  - Disturbance in attention [Recovering/Resolving]
  - Headache [Not Recovered/Not Resolved]
  - Product adhesion issue [Unknown]
  - Cystitis [Unknown]
  - Feeling jittery [Recovering/Resolving]

NARRATIVE: CASE EVENT DATE: 20190609
